FAERS Safety Report 4322533-9 (Version None)
Quarter: 2004Q1

REPORT INFORMATION
  Report Type: 
  Country: None (occurrence: None)
  Receive Date: 20040324
  Receipt Date: 20040318
  Transmission Date: 20041129
  Serious: Yes (Hospitalization)
  Sender: FDA-Public Use
  Company Number: US-BRISTOL-MYERS SQUIBB COMPANY-12537031

PATIENT
  Age: 57 Year
  Sex: Female
  Weight: 86 kg

DRUGS (7)
  1. ERBITUX [Suspect]
     Indication: COLON CANCER
     Dosage: ^50-100 MG^ REPORTED AS LOADING DOSAGE.
     Route: 042
     Dates: start: 20040316, end: 20040316
  2. TOLINASE [Concomitant]
  3. KYTRIL [Concomitant]
     Indication: PREMEDICATION
  4. ATIVAN [Concomitant]
     Indication: PREMEDICATION
  5. BENADRYL [Concomitant]
     Indication: PREMEDICATION
  6. DECADRON [Concomitant]
     Indication: PREMEDICATION
  7. TAGAMET [Concomitant]
     Indication: PREMEDICATION

REACTIONS (2)
  - CHEST DISCOMFORT [None]
  - HYPERTENSION [None]
